FAERS Safety Report 5033311-X (Version None)
Quarter: 2006Q2

REPORT INFORMATION
  Report Type: 
  Country: None (occurrence: None)
  Receive Date: 20060515
  Receipt Date: 20060216
  Transmission Date: 20061013
  Serious: No
  Sender: FDA-Public Use
  Company Number: S06-USA-00574-01

PATIENT
  Age: 86 Year
  Sex: Female

DRUGS (14)
  1. NAMENDA [Suspect]
     Indication: DEMENTIA
     Dosage: 5 MG QD PO
     Route: 048
     Dates: start: 20060212
  2. ASPIRIN [Concomitant]
  3. ARICEPT [Concomitant]
  4. ALTACE [Concomitant]
  5. AMBIEN [Concomitant]
  6. PROTONIX [Concomitant]
  7. REMERON [Concomitant]
  8. SYNTHROID [Concomitant]
  9. ZELNORM [Concomitant]
  10. NEBULEX (NOS) [Concomitant]
  11. GAS-X [Concomitant]
  12. CALCIUM GLUCONATE [Concomitant]
  13. MULTI-VITAMIN [Concomitant]
  14. VITAMIN B COMPLEX CAP [Concomitant]

REACTIONS (1)
  - STOMACH DISCOMFORT [None]
